FAERS Safety Report 21443365 (Version 4)
Quarter: 2024Q1

REPORT INFORMATION
  Report Type: Report from Study
  Country: BR (occurrence: BR)
  Receive Date: 20221012
  Receipt Date: 20240213
  Transmission Date: 20240410
  Serious: Yes (Other)
  Sender: FDA-Public Use
  Company Number: BR-CELLTRION INC.-2022BR016226

PATIENT

DRUGS (8)
  1. TRUXIMA [Suspect]
     Active Substance: RITUXIMAB-ABBS
     Indication: Dermatomyositis
     Dosage: 4 AMPOULES EVERY 6 MONTHS
     Route: 042
  2. TRUXIMA [Suspect]
     Active Substance: RITUXIMAB-ABBS
     Indication: Pulmonary fibrosis
     Dosage: 4 AMPOULES OF 500MG WERE ADMINISTERED ON NOV/06
  3. TRUXIMA [Suspect]
     Active Substance: RITUXIMAB-ABBS
     Dosage: 4 AMPOULES OF 500MG WERE ADMINISTERED ON NOV/21
  4. TRUXIMA [Suspect]
     Active Substance: RITUXIMAB-ABBS
     Dosage: 4 AMPOULES EVERY 6 MONTHS
     Route: 042
  5. LEFLUNOMIDE [Concomitant]
     Active Substance: LEFLUNOMIDE
  6. MYCOPHENOLATE MOFETIL [Concomitant]
     Active Substance: MYCOPHENOLATE MOFETIL
     Indication: Dermatomyositis
     Dosage: 4 TABLETS A DAY
  7. HYDROXYCHLOROQUINE [Concomitant]
     Active Substance: HYDROXYCHLOROQUINE
     Indication: Dermatomyositis
     Dosage: 1 PILL PER DAY; START: MAY/2018 OR MAY/2017; WAS DISCONTINUED IN MAY 2023
     Route: 048
     Dates: end: 2023
  8. CYCLOSPORINE [Concomitant]
     Active Substance: CYCLOSPORINE
     Indication: Dermatomyositis
     Dosage: 6 PILLS PER DAY; WAS REPLACED BY MYCOPHENOLATE MOFETIL
     Route: 048
     Dates: start: 2020

REACTIONS (15)
  - Dermatomyositis [Recovering/Resolving]
  - Condition aggravated [Recovering/Resolving]
  - Ill-defined disorder [Unknown]
  - Wound [Unknown]
  - Proctalgia [Unknown]
  - Throat tightness [Recovering/Resolving]
  - Erythema [Recovering/Resolving]
  - Pain in extremity [Unknown]
  - Pain [Unknown]
  - Pyrexia [Unknown]
  - Arthralgia [Unknown]
  - Intentional product use issue [Unknown]
  - Therapy interrupted [Unknown]
  - Therapeutic product effect incomplete [Unknown]
  - Product dose omission issue [Unknown]
